FAERS Safety Report 17108622 (Version 1)
Quarter: 2019Q4

REPORT INFORMATION
  Report Type: Report from Study
  Country: GB (occurrence: GB)
  Receive Date: 20191203
  Receipt Date: 20191203
  Transmission Date: 20200122
  Serious: Yes (Other)
  Sender: FDA-Public Use
  Company Number: GB-GLAXOSMITHKLINE-GB2019TSO213946

PATIENT
  Age: 49 Year
  Sex: Female

DRUGS (2)
  1. NIRAPARIB [Suspect]
     Active Substance: NIRAPARIB
     Dosage: UNK (SECOND LINE MAINTENANCE (MAINTENANCE THERAPY FOLLOWING SECOND LINE TREATMENT))
  2. NIRAPARIB [Suspect]
     Active Substance: NIRAPARIB
     Indication: OVARIAN CANCER
     Dosage: UNK (SECOND LINE MAINTENANCE (MAINTENANCE THERAPY FOLLOWING SECOND LINE TREATMENT))

REACTIONS (4)
  - Recurrent cancer [Unknown]
  - Disease progression [Unknown]
  - Drug ineffective [Unknown]
  - Thrombocytopenia [Unknown]
